FAERS Safety Report 9495096 (Version 1)
Quarter: 2013Q3

REPORT INFORMATION
  Report Type: Spontaneous
  Country: DE (occurrence: DE)
  Receive Date: 20130903
  Receipt Date: 20130903
  Transmission Date: 20140515
  Serious: Yes (Other)
  Sender: FDA-Public Use
  Company Number: DE-SANOFI-AVENTIS-2013SA085995

PATIENT
  Age: 63 Year
  Sex: Female

DRUGS (1)
  1. STILNOX [Suspect]
     Indication: ANXIETY DISORDER
     Route: 048

REACTIONS (1)
  - Urinary retention [Unknown]
